FAERS Safety Report 8060862-6 (Version None)
Quarter: 2012Q1

REPORT INFORMATION
  Report Type: 
  Country: None (occurrence: None)
  Receive Date: 20120120
  Receipt Date: 20110214
  Transmission Date: 20120608
  Serious: No
  Sender: FDA-Public Use
  Company Number: US-ALLERGAN-1102369US

PATIENT
  Sex: Male

DRUGS (3)
  1. SOOTHE EYE DROPS [Concomitant]
     Indication: STEVENS-JOHNSON SYNDROME
  2. RESTASIS [Suspect]
     Indication: STEVENS-JOHNSON SYNDROME
     Dosage: UNK
  3. OTHER EYE DROPS (UNSPECIFIED) [Concomitant]
     Indication: STEVENS-JOHNSON SYNDROME

REACTIONS (1)
  - DRUG INEFFECTIVE [None]
